FAERS Safety Report 4830000-9 (Version None)
Quarter: 2005Q4

REPORT INFORMATION
  Report Type: 
  Country: None (occurrence: None)
  Receive Date: 20051114
  Receipt Date: 20051028
  Transmission Date: 20060501
  Serious: No
  Sender: FDA-Public Use
  Company Number: 230054M05FRA

PATIENT
  Age: 42 Year
  Sex: Female

DRUGS (2)
  1. REBIF [Suspect]
     Dosage: 44 MCG 3 IN 1 WEEKS
     Dates: start: 20020101
  2. ACETAMINOPHEN [Concomitant]

REACTIONS (1)
  - BREAST CANCER FEMALE [None]
